FAERS Safety Report 7906703-6 (Version None)
Quarter: 2011Q4

REPORT INFORMATION
  Report Type: 
  Country: None (occurrence: None)
  Receive Date: 20111110
  Receipt Date: 20111101
  Transmission Date: 20120403
  Serious: Yes (Hospitalization)
  Sender: FDA-Public Use
  Company Number: GB-JNJFOC-20111001060

PATIENT
  Sex: Female

DRUGS (1)
  1. ABIRATERONE ACETATE [Suspect]
     Indication: BREAST CANCER METASTATIC
     Dosage: CYCLE 1, DAY 1
     Route: 048
     Dates: start: 20110831

REACTIONS (1)
  - ABDOMINAL PAIN [None]
